FAERS Safety Report 19646870 (Version 1)
Quarter: 2021Q3

REPORT INFORMATION
  Report Type: Spontaneous
  Country: US (occurrence: US)
  Receive Date: 20210802
  Receipt Date: 20210802
  Transmission Date: 20211014
  Serious: Yes (Hospitalization)
  Sender: FDA-Public Use
  Company Number: US-SA-2021SA253065

PATIENT
  Sex: Female

DRUGS (17)
  1. FISH OIL [Concomitant]
     Active Substance: FISH OIL
     Dosage: 100MG
  2. WELLBUTRIN [Concomitant]
     Active Substance: BUPROPION HYDROCHLORIDE
     Dosage: 300MG
  3. ACTONEL [Concomitant]
     Active Substance: RISEDRONATE SODIUM
  4. BUPROPION. [Concomitant]
     Active Substance: BUPROPION
     Dosage: 300MG
  5. CALCIO VIT D3 [Concomitant]
     Dosage: 600?800M
  6. ABILIFY [Concomitant]
     Active Substance: ARIPIPRAZOLE
  7. AUBAGIO [Suspect]
     Active Substance: TERIFLUNOMIDE
     Indication: MULTIPLE SCLEROSIS
     Dosage: 14 MG, QD
     Route: 048
  8. BIOTIN [Concomitant]
     Active Substance: BIOTIN
  9. ARIPIPRAZOLE. [Concomitant]
     Active Substance: ARIPIPRAZOLE
     Dosage: 10MG
  10. BENTYL [Concomitant]
     Active Substance: DICYCLOMINE HYDROCHLORIDE
     Dosage: 10MG
  11. DONEPEZIL. [Concomitant]
     Active Substance: DONEPEZIL
     Dosage: 10MG
  12. VITAMIN D3 [Concomitant]
     Active Substance: CHOLECALCIFEROL
  13. ALPRAZOLAM. [Concomitant]
     Active Substance: ALPRAZOLAM
  14. COPAXONE [Concomitant]
     Active Substance: GLATIRAMER ACETATE
  15. ARICEPT [Concomitant]
     Active Substance: DONEPEZIL HYDROCHLORIDE
     Dosage: 10MG
  16. DICYCLOMINE [Concomitant]
     Active Substance: DICYCLOMINE HYDROCHLORIDE
     Dosage: 10MG
  17. VITAMIN B12 [VITAMIN B12 NOS] [Concomitant]
     Active Substance: CYANOCOBALAMIN

REACTIONS (1)
  - Blood disorder [Not Recovered/Not Resolved]
